FAERS Safety Report 21218210 (Version 1)
Quarter: 2022Q3

REPORT INFORMATION
  Report Type: Spontaneous
  Country: US (occurrence: None)
  Receive Date: 20220816
  Receipt Date: 20220816
  Transmission Date: 20221027
  Serious: Yes (Hospitalization)
  Sender: FDA-Public Use
  Company Number: None

PATIENT
  Sex: Male
  Weight: 11.9 kg

DRUGS (6)
  1. DAUNORUBICIN [Suspect]
     Active Substance: DAUNORUBICIN
  2. DEXAMETHASONE [Suspect]
     Active Substance: DEXAMETHASONE
     Dates: end: 20220809
  3. METHOTREXATE [Suspect]
     Active Substance: METHOTREXATE
     Dates: end: 20220804
  4. ONCASPAR [Suspect]
     Active Substance: PEGASPARGASE
     Dates: end: 20220801
  5. CYTARABINE [Suspect]
     Active Substance: CYTARABINE
     Dates: end: 20220728
  6. VINCRISTINE SULFATE [Suspect]
     Active Substance: VINCRISTINE SULFATE
     Dates: end: 20220804

REACTIONS (11)
  - Vomiting [None]
  - Neutropenia [None]
  - Tachypnoea [None]
  - Tachycardia [None]
  - Hypotension [None]
  - Dehydration [None]
  - Peripheral coldness [None]
  - Septic shock [None]
  - Atelectasis [None]
  - Lung consolidation [None]
  - Diarrhoea [None]

NARRATIVE: CASE EVENT DATE: 20220809
